FAERS Safety Report 8099602-3 (Version None)
Quarter: 2012Q1

REPORT INFORMATION
  Report Type: 
  Country: None (occurrence: None)
  Receive Date: 20120131
  Receipt Date: 20120124
  Transmission Date: 20120608
  Serious: Yes (Disabling, Other)
  Sender: FDA-Public Use
  Company Number: US-PFIZER INC-2012007152

PATIENT
  Sex: Female
  Weight: 109 kg

DRUGS (3)
  1. NEURONTIN [Suspect]
     Indication: NEUROPATHY PERIPHERAL
     Dosage: 3600 MG, DAILY
     Dates: end: 20111201
  2. CYMBALTA [Concomitant]
     Indication: DEPRESSION
     Dosage: 90 MG, DAILY
  3. CYMBALTA [Concomitant]
     Indication: PAIN

REACTIONS (3)
  - PAIN IN EXTREMITY [None]
  - DYSSTASIA [None]
  - ABASIA [None]
